FAERS Safety Report 7597703-7 (Version None)
Quarter: 2011Q3

REPORT INFORMATION
  Report Type: 
  Country: None (occurrence: None)
  Receive Date: 20110708
  Receipt Date: 20110630
  Transmission Date: 20111222
  Serious: Yes (Hospitalization)
  Sender: FDA-Public Use
  Company Number: US-GLAXOSMITHKLINE-A0924763A

PATIENT
  Age: 48 Year
  Sex: Female

DRUGS (5)
  1. NAPROXEN [Concomitant]
  2. VENTOLIN HFA [Suspect]
     Indication: ASTHMA
     Dosage: 2PUFF AS REQUIRED
     Route: 055
  3. SYMBICORT [Concomitant]
  4. HYDROCHLOROTHIAZIDE [Concomitant]
  5. SPIRIVA [Concomitant]

REACTIONS (3)
  - FATIGUE [None]
  - PNEUMONIA [None]
  - OXYGEN SATURATION DECREASED [None]
